FAERS Safety Report 6106280-9 (Version None)
Quarter: 2009Q1

REPORT INFORMATION
  Report Type: 
  Country: None (occurrence: None)
  Receive Date: 20090303
  Receipt Date: 20090216
  Transmission Date: 20090719
  Serious: Yes (Other)
  Sender: FDA-Public Use
  Company Number: 2009S1002734

PATIENT
  Age: 61 Year
  Sex: Male

DRUGS (4)
  1. NICARDIPINE HCL [Suspect]
     Indication: HYPERTENSION
  2. MANNITOL (CON.) [Concomitant]
  3. METOPROLOL (CON.) [Concomitant]
  4. HEPARIN (CON.) [Concomitant]

REACTIONS (2)
  - CEREBRAL HAEMORRHAGE [None]
  - HEPATITIS ACUTE [None]
